FAERS Safety Report 9154013 (Version 1)
Quarter: 2013Q1

REPORT INFORMATION
  Report Type: Spontaneous
  Country: US (occurrence: US)
  Receive Date: 20130311
  Receipt Date: 20130311
  Transmission Date: 20140127
  Serious: No
  Sender: FDA-Public Use
  Company Number: US-009507513-1303USA004344

PATIENT
  Sex: Male

DRUGS (2)
  1. AZASITE [Suspect]
     Indication: EYE INFECTION
     Dosage: ONE DROP IN EACH EYE, BID
     Route: 047
     Dates: start: 20130225, end: 20130226
  2. AZASITE [Suspect]
     Indication: DRY EYE
     Dosage: ONE DROP IN EACH EYE, QD
     Route: 047
     Dates: start: 20130227

REACTIONS (3)
  - Inappropriate schedule of drug administration [Unknown]
  - Drug prescribing error [Unknown]
  - No adverse event [Unknown]
